FAERS Safety Report 4916008-3 (Version None)
Quarter: 2006Q1

REPORT INFORMATION
  Report Type: 
  Country: None (occurrence: None)
  Receive Date: 20060214
  Receipt Date: 20060127
  Transmission Date: 20060701
  Serious: Yes (Hospitalization, Disabling)
  Sender: FDA-Public Use
  Company Number: 385632

PATIENT
  Age: 21 Year
  Sex: Male
  Weight: 102.1 kg

DRUGS (1)
  1. ACCUTANE [Suspect]
     Indication: ACNE
     Dosage: 40 MG 4 PER DAY ORAL
     Route: 048
     Dates: start: 19900702, end: 19970714

REACTIONS (60)
  - ABSCESS INTESTINAL [None]
  - ACNE [None]
  - ANGINA PECTORIS [None]
  - ANGIOPATHY [None]
  - APPENDICITIS [None]
  - ARTHRALGIA [None]
  - ARTHRITIS [None]
  - AUTOIMMUNE DISORDER [None]
  - BACK PAIN [None]
  - BLOOD CHOLESTEROL INCREASED [None]
  - BLOOD TRIGLYCERIDES INCREASED [None]
  - BONE DISORDER [None]
  - CHEST PAIN [None]
  - CHOLESTEROSIS [None]
  - CLOSTRIDIAL INFECTION [None]
  - COLITIS [None]
  - COLITIS ULCERATIVE [None]
  - CONDITION AGGRAVATED [None]
  - DEPRESSION [None]
  - DRUG HYPERSENSITIVITY [None]
  - DRY SKIN [None]
  - EAR INFECTION [None]
  - FEAR [None]
  - GALLBLADDER DISORDER [None]
  - GALLBLADDER NECROSIS [None]
  - GAMMA-GLUTAMYLTRANSFERASE INCREASED [None]
  - GASTROINTESTINAL DISORDER [None]
  - GASTROINTESTINAL MOTILITY DISORDER [None]
  - HAEMOBILIA [None]
  - HEPATIC STEATOSIS [None]
  - HERNIA [None]
  - HYPERPLASIA [None]
  - HYPERTENSION [None]
  - ILEUS [None]
  - INFLAMMATORY BOWEL DISEASE [None]
  - INJURY [None]
  - INTERVERTEBRAL DISC DEGENERATION [None]
  - INTERVERTEBRAL DISC PROTRUSION [None]
  - INTESTINAL HAEMORRHAGE [None]
  - LIMB INJURY [None]
  - LUNG INFILTRATION [None]
  - LYMPHADENOPATHY [None]
  - MALAISE [None]
  - MARITAL PROBLEM [None]
  - MULTI-ORGAN DISORDER [None]
  - MUSCLE SPASMS [None]
  - MUSCULOSKELETAL DISORDER [None]
  - NECK PAIN [None]
  - NERVE ROOT INJURY [None]
  - OEDEMA [None]
  - ONYCHOMYCOSIS [None]
  - PANCREATITIS [None]
  - PROCTITIS ULCERATIVE [None]
  - RECTAL HAEMORRHAGE [None]
  - STRESS [None]
  - TESTICULAR DISORDER [None]
  - TREATMENT NONCOMPLIANCE [None]
  - TYMPANIC MEMBRANE DISORDER [None]
  - ULCER [None]
  - VARICOCELE [None]
